FAERS Safety Report 24044913 (Version 1)
Quarter: 2024Q3

REPORT INFORMATION
  Report Type: Spontaneous
  Country: EG (occurrence: EG)
  Receive Date: 20240703
  Receipt Date: 20240703
  Transmission Date: 20241017
  Serious: Yes (Death, Life-Threatening, Hospitalization)
  Sender: MACLEODS
  Company Number: EG-MACLEODS PHARMA-MAC2024047912

PATIENT

DRUGS (1)
  1. TRAMADOL [Suspect]
     Active Substance: TRAMADOL\TRAMADOL HYDROCHLORIDE
     Indication: Product used for unknown indication
     Route: 063

REACTIONS (23)
  - Cardio-respiratory arrest [Fatal]
  - Toxicity to various agents [Fatal]
  - Cyanosis [Recovering/Resolving]
  - Mental status changes [Recovering/Resolving]
  - Unresponsive to stimuli [Recovering/Resolving]
  - Ataxia [Recovering/Resolving]
  - Agitation [Recovering/Resolving]
  - Hyperreflexia [Recovering/Resolving]
  - Respiratory acidosis [Recovering/Resolving]
  - Iron deficiency anaemia [Not Recovered/Not Resolved]
  - Generalised tonic-clonic seizure [Not Recovered/Not Resolved]
  - Shock [Not Recovered/Not Resolved]
  - Sinus tachycardia [Not Recovered/Not Resolved]
  - Metabolic acidosis [Not Recovered/Not Resolved]
  - Pneumonia aspiration [Not Recovered/Not Resolved]
  - Coagulopathy [Not Recovered/Not Resolved]
  - Decerebrate posture [Not Recovered/Not Resolved]
  - Renal failure [Not Recovered/Not Resolved]
  - Mydriasis [Not Recovered/Not Resolved]
  - Somnolence [Recovering/Resolving]
  - Hypotension [Not Recovered/Not Resolved]
  - Miosis [Recovering/Resolving]
  - Maternal exposure during breast feeding [Unknown]
